FAERS Safety Report 25947425 (Version 1)
Quarter: 2025Q4

REPORT INFORMATION
  Report Type: Report from Study
  Country: US (occurrence: US)
  Receive Date: 20251022
  Receipt Date: 20251022
  Transmission Date: 20260117
  Serious: Yes (Other)
  Sender: ALEXION PHARMACEUTICALS
  Company Number: US-AstraZeneca-CH-00973013A

PATIENT
  Sex: Female

DRUGS (1)
  1. BUDESONIDE\FORMOTEROL\GLYCOPYRRONIUM [Suspect]
     Active Substance: BUDESONIDE\FORMOTEROL\GLYCOPYRRONIUM
     Dosage: UNK
     Route: 065

REACTIONS (6)
  - Oral pain [Recovering/Resolving]
  - Oral candidiasis [Recovering/Resolving]
  - Dysphagia [Recovering/Resolving]
  - Mouth haemorrhage [Recovering/Resolving]
  - Weight decreased [Recovering/Resolving]
  - Stomatitis [Recovering/Resolving]
